FAERS Safety Report 6030400-8 (Version None)
Quarter: 2009Q1

REPORT INFORMATION
  Report Type: 
  Country: None (occurrence: None)
  Receive Date: 20090106
  Receipt Date: 20090106
  Transmission Date: 20090719
  Serious: Yes (Death, Hospitalization)
  Sender: FDA-Public Use
  Company Number: None

PATIENT
  Sex: Female
  Weight: 63 kg

DRUGS (4)
  1. MERCAPTOPURINE [Suspect]
     Dosage: 1300 MG
     Dates: end: 20050630
  2. METHOTREXATE [Suspect]
     Dosage: 15 MG
     Dates: end: 20050629
  3. VINCRISTINE SULFATE [Suspect]
     Dosage: 2 MG
     Dates: end: 20050629
  4. LEUCOVORIN CALCIUM [Suspect]
     Dates: end: 20050722

REACTIONS (13)
  - ANOREXIA [None]
  - BLOOD CULTURE POSITIVE [None]
  - CARDIOGENIC SHOCK [None]
  - CARDIOMEGALY [None]
  - COUGH [None]
  - DIALYSIS [None]
  - DRUG LEVEL INCREASED [None]
  - DYSPNOEA [None]
  - ENTEROCOCCAL INFECTION [None]
  - FATIGUE [None]
  - HYPOXIA [None]
  - PLEURAL EFFUSION [None]
  - WHEEZING [None]
